FAERS Safety Report 18470257 (Version 3)
Quarter: 2021Q1

REPORT INFORMATION
  Report Type: Spontaneous
  Country: US (occurrence: US)
  Receive Date: 20201102
  Receipt Date: 20210104
  Transmission Date: 20210419
  Serious: Yes (Other)
  Sender: FDA-Public Use
  Company Number: US-PURDUE-USA-2020-0170807

PATIENT
  Sex: Female

DRUGS (6)
  1. OXYCODONE HCL TABLETS (RHODES 91?490) [Suspect]
     Active Substance: OXYCODONE HYDROCHLORIDE
     Dosage: 20 MG, DAILY PRN
     Route: 048
  2. OXYCODONE HYDROCHLORIDE (SIMILAR TO NDA 22?272) [Suspect]
     Active Substance: OXYCODONE HYDROCHLORIDE
     Indication: PRODUCT USED FOR UNKNOWN INDICATION
     Dosage: UNKNOWN
     Route: 048
  3. OXYCONTIN [Suspect]
     Active Substance: OXYCODONE HYDROCHLORIDE
     Indication: SURGERY
     Dosage: 400 MG, DAILY
     Route: 048
     Dates: start: 201412
  4. OXYCODONE/ ACETAMINOPHEN TABLETS [Suspect]
     Active Substance: ACETAMINOPHEN\OXYCODONE HYDROCHLORIDE
     Indication: PRODUCT USED FOR UNKNOWN INDICATION
     Dosage: UNKNOWN
     Route: 048
  5. OXYCODONE HCL TABLETS (RHODES 91?490) [Suspect]
     Active Substance: OXYCODONE HYDROCHLORIDE
     Indication: PAIN
     Dosage: 15 MG, BID PRN
     Route: 048
  6. OXYCONTIN [Suspect]
     Active Substance: OXYCODONE HYDROCHLORIDE
     Dosage: 10 MG, Q8H
     Route: 048

REACTIONS (28)
  - Depressed level of consciousness [Unknown]
  - Nausea [Unknown]
  - Liver disorder [Unknown]
  - Self esteem decreased [Unknown]
  - Heart rate irregular [Unknown]
  - Abdominal pain upper [Unknown]
  - Illness [Unknown]
  - Headache [Unknown]
  - Cardiac disorder [Unknown]
  - Emotional distress [Unknown]
  - Drug dependence [Unknown]
  - Hypertension [Unknown]
  - Renal pain [Unknown]
  - Stress [Unknown]
  - Haemorrhage [Unknown]
  - Tooth loss [Unknown]
  - Constipation [Unknown]
  - Vision blurred [Unknown]
  - Bone density decreased [Unknown]
  - Haematuria [Unknown]
  - Bone pain [Unknown]
  - Neoplasm malignant [Unknown]
  - Haematochezia [Unknown]
  - Overdose [Unknown]
  - Renal disorder [Unknown]
  - Pain [Unknown]
  - Poor quality sleep [Unknown]
  - Depressed mood [Unknown]
